FAERS Safety Report 8535080-5 (Version None)
Quarter: 2012Q3

REPORT INFORMATION
  Report Type: 
  Country: None (occurrence: None)
  Receive Date: 20120724
  Receipt Date: 20120718
  Transmission Date: 20120928
  Serious: Yes (Hospitalization)
  Sender: FDA-Public Use
  Company Number: BR-PFIZER INC-2012174514

PATIENT
  Age: 66 Year
  Sex: Female

DRUGS (3)
  1. CALCIUM CARBONATE [Concomitant]
     Indication: BONE DISORDER
     Dosage: 1 DF, 1X/DAY
  2. ATACAND [Concomitant]
     Indication: HYPERTENSION
     Dosage: 1 DF, 1X/DAY
     Dates: start: 20070101
  3. LYRICA [Suspect]
     Indication: RELAXATION THERAPY
     Dosage: 75 MG, 1X/DAY
     Route: 048
     Dates: start: 20120201, end: 20120401

REACTIONS (1)
  - SPINAL DISORDER [None]
